FAERS Safety Report 23194724 (Version 1)
Quarter: 2023Q4

REPORT INFORMATION
  Report Type: Spontaneous
  Country: CN (occurrence: CN)
  Receive Date: 20231117
  Receipt Date: 20231117
  Transmission Date: 20240109
  Serious: Yes (Other)
  Sender: FDA-Public Use
  Company Number: CN-STRIDES ARCOLAB LIMITED-2023SP016966

PATIENT
  Age: 66 Year

DRUGS (11)
  1. ETOPOSIDE [Suspect]
     Active Substance: ETOPOSIDE
     Indication: Squamous cell carcinoma of lung
     Dosage: 50 MILLIGRAM PER DAY
     Route: 065
     Dates: start: 201802, end: 201805
  2. GEMCITABINE [Suspect]
     Active Substance: GEMCITABINE
     Indication: Squamous cell carcinoma of lung
     Dosage: UNK, 2 CYCLES
     Route: 065
     Dates: start: 20160223, end: 20160607
  3. CISPLATIN [Suspect]
     Active Substance: CISPLATIN
     Indication: Squamous cell carcinoma of lung
     Dosage: UNK
     Route: 065
     Dates: start: 20160223, end: 20160607
  4. CISPLATIN [Suspect]
     Active Substance: CISPLATIN
     Dosage: UNK
     Route: 042
     Dates: start: 20180531, end: 20180715
  5. DOCETAXEL [Suspect]
     Active Substance: DOCETAXEL\DOCETAXEL ANHYDROUS
     Indication: Squamous cell carcinoma of lung
     Dosage: UNK UNK, CYCLICAL
     Route: 065
     Dates: start: 20160917, end: 20161030
  6. KEYTRUDA [Suspect]
     Active Substance: PEMBROLIZUMAB
     Indication: Squamous cell carcinoma of lung
     Dosage: 150 MILLIGRAM, BIWEEKLY
     Route: 065
     Dates: start: 20161115, end: 20170816
  7. NEDAPLATIN [Suspect]
     Active Substance: NEDAPLATIN
     Indication: Squamous cell carcinoma of lung
     Dosage: UNK, RECEIVED ON DAY 1
     Route: 065
     Dates: start: 20161115, end: 20170816
  8. VINORELBINE [Suspect]
     Active Substance: VINORELBINE TARTRATE
     Indication: Squamous cell carcinoma of lung
     Dosage: UNK, RECEIVED ON DAY 1 AND 8.
     Route: 065
     Dates: start: 20161115, end: 20170816
  9. AFATINIB [Suspect]
     Active Substance: AFATINIB
     Indication: Squamous cell carcinoma of lung
     Dosage: 40 MILLIGRAM PER DAY
     Route: 065
     Dates: start: 20171103, end: 201802
  10. PACLITAXEL [Suspect]
     Active Substance: PACLITAXEL
     Indication: Squamous cell carcinoma of lung
     Dosage: UNK UNK, EVERY 3 WEEKS
     Route: 042
     Dates: start: 20180531, end: 20180715
  11. CATEQUENTINIB [Suspect]
     Active Substance: CATEQUENTINIB
     Indication: Squamous cell carcinoma of lung
     Dosage: UNK
     Route: 065
     Dates: start: 20180801, end: 20181228

REACTIONS (3)
  - Interstitial lung disease [Recovered/Resolved]
  - Drug ineffective [Unknown]
  - Malignant neoplasm progression [Unknown]
